FAERS Safety Report 5647664-2 (Version None)
Quarter: 2008Q1

REPORT INFORMATION
  Report Type: 
  Country: None (occurrence: None)
  Receive Date: 20080303
  Receipt Date: 20080220
  Transmission Date: 20080703
  Serious: Yes (Hospitalization)
  Sender: FDA-Public Use
  Company Number: DE-PFIZER INC-2008001246

PATIENT
  Sex: Female
  Weight: 78 kg

DRUGS (1)
  1. DEPO-CLINOVIR [Suspect]
     Route: 030
     Dates: start: 20070109, end: 20070109

REACTIONS (8)
  - ANXIETY DISORDER [None]
  - ASTHENIA [None]
  - DEPRESSION [None]
  - MIGRAINE WITH AURA [None]
  - NAUSEA [None]
  - PALPITATIONS [None]
  - VERTIGO [None]
  - VOMITING [None]
